FAERS Safety Report 4715963-4 (Version None)
Quarter: 2005Q3

REPORT INFORMATION
  Report Type: 
  Country: None (occurrence: None)
  Receive Date: 20050718
  Receipt Date: 20050311
  Transmission Date: 20060218
  Serious: Yes (Hospitalization, Disabling)
  Sender: FDA-Public Use
  Company Number: US-MERCK-0503USA02618

PATIENT
  Age: 45 Year
  Sex: Female
  Weight: 57 kg

DRUGS (6)
  1. VIOXX [Suspect]
     Indication: SPONDYLITIS
     Route: 048
     Dates: start: 20010101, end: 20030101
  2. ASPIRIN [Concomitant]
     Route: 048
  3. ALEVE [Concomitant]
     Route: 065
  4. TYLENOL [Concomitant]
     Route: 065
  5. ADVIL [Concomitant]
     Route: 065
  6. MOTRIN [Concomitant]
     Route: 065

REACTIONS (3)
  - ANXIETY [None]
  - CHEST PAIN [None]
  - MYOCARDIAL INFARCTION [None]
